FAERS Safety Report 8437610-0 (Version None)
Quarter: 2012Q2

REPORT INFORMATION
  Report Type: 
  Country: None (occurrence: None)
  Receive Date: 20120614
  Receipt Date: 20120420
  Transmission Date: 20120825
  Serious: No
  Sender: FDA-Public Use
  Company Number: US-AMGEN-USASP2012025309

PATIENT
  Age: 88 Year
  Sex: Female

DRUGS (5)
  1. VITAMIN D [Concomitant]
     Dosage: 2 IU, QD
  2. CALCIUM CARBONATE [Concomitant]
  3. COUMADIN [Concomitant]
     Dosage: UNK
  4. LOVAZA [Concomitant]
     Dosage: 2 MG, QD
  5. PROLIA [Suspect]
     Indication: OSTEOPOROSIS POSTMENOPAUSAL
     Dosage: 60 MG, Q6MO
     Dates: start: 20111213

REACTIONS (5)
  - ASTHENIA [None]
  - MUSCULOSKELETAL STIFFNESS [None]
  - GAIT DISTURBANCE [None]
  - BONE PAIN [None]
  - WEIGHT INCREASED [None]
